FAERS Safety Report 9946989 (Version 1)
Quarter: 2014Q1

REPORT INFORMATION
  Report Type: Report from Study
  Country: US (occurrence: US)
  Receive Date: 20140303
  Receipt Date: 20140303
  Transmission Date: 20141002
  Serious: No
  Sender: FDA-Public Use
  Company Number: US-ABBVIE-13P-163-1065397-00

PATIENT
  Age: 61 Year
  Sex: Male

DRUGS (4)
  1. HUMIRA [Suspect]
     Indication: PSORIASIS
     Dates: start: 201211
  2. ALPRAZOLAM [Concomitant]
     Indication: ANXIETY
  3. ADDERALL [Concomitant]
     Indication: ANXIETY
  4. SEROQUEL [Concomitant]
     Indication: SLEEP DISORDER THERAPY
     Dosage: 2 PILLS AT BEDTIME

REACTIONS (1)
  - Injection site pain [Recovered/Resolved]
